FAERS Safety Report 7085972-1 (Version None)
Quarter: 2010Q4

REPORT INFORMATION
  Report Type: 
  Country: None (occurrence: None)
  Receive Date: 20101105
  Receipt Date: 20101026
  Transmission Date: 20110411
  Serious: Yes (Hospitalization)
  Sender: FDA-Public Use
  Company Number: US-JNJFOC-20101100275

PATIENT
  Sex: Male
  Weight: 36.4 kg

DRUGS (10)
  1. REMICADE [Suspect]
     Indication: CROHN'S DISEASE
     Route: 042
  2. REMICADE [Suspect]
     Route: 042
  3. REMICADE [Suspect]
     Route: 042
  4. ALBUTEROL [Concomitant]
  5. MESALAMINE [Concomitant]
     Route: 048
  6. TOPAMAX [Concomitant]
     Indication: TIC
     Route: 048
  7. CLOBETASOL PROPIONATE [Concomitant]
     Indication: RASH
  8. ZYRTEC [Concomitant]
     Route: 048
  9. MULTI-VITAMINS [Concomitant]
  10. ENTERAL FEEDING [Concomitant]

REACTIONS (1)
  - CROHN'S DISEASE [None]
